FAERS Safety Report 6763434-6 (Version None)
Quarter: 2010Q2

REPORT INFORMATION
  Report Type: 
  Country: None (occurrence: None)
  Receive Date: 20100610
  Receipt Date: 20100519
  Transmission Date: 20101027
  Serious: No
  Sender: FDA-Public Use
  Company Number: US-B.I. PHARMACEUTICALS,INC./RIDGEFIELD-2010-BP-06479BP

PATIENT
  Age: 34 Year
  Sex: Male

DRUGS (1)
  1. MELOXICAM [Suspect]
     Indication: ACCIDENTAL EXPOSURE
     Dosage: 0.5MG/ML
     Route: 048
     Dates: start: 20100518

REACTIONS (3)
  - EYE IRRITATION [None]
  - PAIN [None]
  - VISION BLURRED [None]
